FAERS Safety Report 21223418 (Version 3)
Quarter: 2022Q4

REPORT INFORMATION
  Report Type: Spontaneous
  Country: US (occurrence: US)
  Receive Date: 20220817
  Receipt Date: 20221024
  Transmission Date: 20230112
  Serious: Yes (Other)
  Sender: FDA-Public Use
  Company Number: US-PFIZER INC-202201048224

PATIENT
  Age: 76 Year
  Sex: Male
  Weight: 102.06 kg

DRUGS (1)
  1. COLESTIPOL HYDROCHLORIDE [Suspect]
     Active Substance: COLESTIPOL HYDROCHLORIDE
     Indication: Biliary tract disorder
     Dosage: 1 G, 2X/DAY
     Route: 048
     Dates: start: 20220528

REACTIONS (6)
  - Intentional product misuse [Unknown]
  - Wrong technique in product usage process [Unknown]
  - Product physical issue [Unknown]
  - Foreign body in throat [Unknown]
  - Choking sensation [Unknown]
  - Off label use [Unknown]
